FAERS Safety Report 4662788-4 (Version None)
Quarter: 2005Q2

REPORT INFORMATION
  Report Type: 
  Country: None (occurrence: None)
  Receive Date: 20050512
  Receipt Date: 20050425
  Transmission Date: 20051028
  Serious: Yes (Life-Threatening)
  Sender: FDA-Public Use
  Company Number: JP_050406437

PATIENT
  Age: 62 Year
  Sex: Male
  Weight: 69 kg

DRUGS (7)
  1. PEMETREXED [Suspect]
     Indication: NON-SMALL CELL LUNG CANCER
     Dosage: 1750 MG OTHER
     Route: 050
     Dates: start: 20050128, end: 20050325
  2. PANVITAN [Concomitant]
  3. HYDROXOCOBALAMIN ACETATE [Concomitant]
  4. ACECOL (TEMOCAPRIL HYDROCHLORIDE) [Concomitant]
  5. MERISLON (BETAHISTINE HYDROCHLORIDE) [Concomitant]
  6. EUGLUCON (GLIBENCLAMIDE) [Concomitant]
  7. CEPHADOL (DIFENIDOL HYDROCHLORIDE) [Concomitant]

REACTIONS (15)
  - BLOOD LACTATE DEHYDROGENASE INCREASED [None]
  - HAEMOGLOBIN DECREASED [None]
  - HEART RATE INCREASED [None]
  - LYMPHOCYTE COUNT DECREASED [None]
  - MALIGNANT NEOPLASM PROGRESSION [None]
  - NEUTROPHIL COUNT DECREASED [None]
  - OXYGEN SATURATION DECREASED [None]
  - PERFORMANCE STATUS DECREASED [None]
  - PLATELET COUNT DECREASED [None]
  - PLATELET COUNT INCREASED [None]
  - PRURITUS [None]
  - PYREXIA [None]
  - RADIATION PNEUMONITIS [None]
  - RED BLOOD CELL COUNT DECREASED [None]
  - WHITE BLOOD CELL COUNT DECREASED [None]
